FAERS Safety Report 17187904 (Version 1)
Quarter: 2019Q4

REPORT INFORMATION
  Report Type: Spontaneous
  Country: US (occurrence: US)
  Receive Date: 20191221
  Receipt Date: 20191221
  Transmission Date: 20200122
  Serious: No
  Sender: FDA-Public Use
  Company Number: US-009507513-1912USA001968

PATIENT
  Age: 33 Year
  Sex: Female
  Weight: 82.99 kg

DRUGS (1)
  1. NEXPLANON [Suspect]
     Active Substance: ETONOGESTREL
     Dosage: 1 IMPLANT, EVERY THREE YEARS
     Route: 059
     Dates: start: 20190201, end: 20191202

REACTIONS (3)
  - Device breakage [Recovered/Resolved]
  - No adverse event [Unknown]
  - Device kink [Recovered/Resolved]

NARRATIVE: CASE EVENT DATE: 20191202
